FAERS Safety Report 8572014-1 (Version None)
Quarter: 2012Q3

REPORT INFORMATION
  Report Type: 
  Country: None (occurrence: None)
  Receive Date: 20120806
  Receipt Date: 20120727
  Transmission Date: 20120928
  Serious: Yes (Hospitalization)
  Sender: FDA-Public Use
  Company Number: BE-BRISTOL-MYERS SQUIBB COMPANY-16398901

PATIENT
  Age: 74 Year
  Sex: Male
  Weight: 74 kg

DRUGS (15)
  1. ISOTEN [Concomitant]
     Route: 048
     Dates: start: 20111101, end: 20120210
  2. SPIRIVA [Concomitant]
     Route: 055
     Dates: start: 20111101
  3. CISPLATIN [Suspect]
     Indication: NON-SMALL CELL LUNG CANCER
     Dosage: RECENT INF ON 24-JAN-2012
     Route: 042
     Dates: start: 20111213, end: 20120124
  4. MEDROL [Concomitant]
     Route: 048
     Dates: start: 20111220, end: 20120210
  5. VOLTAREN [Concomitant]
     Dosage: 12DEC11 - 20DEC2011, 31JAN12 - 14FEB12, 03MAR12-ONG : 75 MG.
     Route: 048
     Dates: start: 20111212
  6. MINOCYCLINE HCL [Concomitant]
     Route: 048
     Dates: start: 20120117, end: 20120203
  7. ACETAMINOPHEN [Concomitant]
     Route: 048
  8. OMEPRAZOLE [Concomitant]
     Route: 048
     Dates: start: 20111101, end: 20120222
  9. CETUXIMAB [Suspect]
     Indication: NON-SMALL CELL LUNG CANCER
     Dosage: CETUXIMAB 5MG/ML
     Route: 042
     Dates: start: 20111213, end: 20120131
  10. VINORELBINE [Suspect]
     Indication: NON-SMALL CELL LUNG CANCER
     Dosage: 1 AND DAY 8 OF EACH 3WEEK CYCLE
     Route: 042
  11. ULTRA-MG [Concomitant]
     Indication: PROPHYLAXIS
     Route: 048
  12. DURAGESIC-100 [Concomitant]
     Route: 003
  13. GEMCITABINE HYDROCHLORIDE [Suspect]
     Indication: NON-SMALL CELL LUNG CANCER
     Dosage: 1 AND DAY 8 OF EACH 3-WEEK CYCLE
     Route: 042
     Dates: start: 20111213, end: 20120131
  14. LITICAN [Concomitant]
     Route: 048
     Dates: start: 20120103, end: 20120203
  15. PRIMPERAN TAB [Concomitant]
     Dosage: 60 MG:20DEC11-12FEB12, 60 MG: 13FEB12 - 06 MAR12 (IV)
     Route: 048
     Dates: start: 20111220

REACTIONS (1)
  - DIVERTICULITIS [None]
